FAERS Safety Report 4451165-7 (Version None)
Quarter: 2004Q3

REPORT INFORMATION
  Report Type: 
  Country: None (occurrence: None)
  Receive Date: 20040913
  Receipt Date: 20040701
  Transmission Date: 20050211
  Serious: No
  Sender: FDA-Public Use
  Company Number: 2004-BP-05343BP(0)

PATIENT
  Sex: Female

DRUGS (7)
  1. SPIRIVA [Suspect]
     Indication: CHRONIC OBSTRUCTIVE AIRWAYS DISEASE
     Dosage: 18 MCG (18 MCG, 18 MCG ONCE DAILY), IH
     Route: 055
     Dates: start: 20040602
  2. SPIRIVA [Suspect]
     Indication: EMPHYSEMA
     Dosage: 18 MCG (18 MCG, 18 MCG ONCE DAILY), IH
     Route: 055
     Dates: start: 20040602
  3. COMBIVENT [Concomitant]
  4. ALBUTEROL [Concomitant]
  5. SYNTHROID [Concomitant]
  6. DETROL (TOLTEDRODINE L-TARTRATE) [Concomitant]
  7. VERAPAMIL [Concomitant]

REACTIONS (2)
  - MEDICATION RESIDUE [None]
  - UNEXPECTED THERAPEUTIC DRUG EFFECT [None]
